FAERS Safety Report 6825269-5 (Version None)
Quarter: 2010Q3

REPORT INFORMATION
  Report Type: 
  Country: None (occurrence: None)
  Receive Date: 20100708
  Receipt Date: 20061222
  Transmission Date: 20110219
  Serious: No
  Sender: FDA-Public Use
  Company Number: US-PFIZER INC-2007001291

PATIENT
  Sex: Male
  Weight: 74.84 kg

DRUGS (5)
  1. CHANTIX [Suspect]
     Dates: start: 20061201
  2. LOPRESSOR [Concomitant]
     Indication: HYPERTENSION
  3. ACETYLSALICYLIC ACID [Concomitant]
  4. ZOCOR [Concomitant]
  5. ARTHROTEC [Concomitant]

REACTIONS (3)
  - BLOOD PRESSURE DECREASED [None]
  - DIZZINESS [None]
  - HEART RATE DECREASED [None]
